FAERS Safety Report 12800528 (Version 1)
Quarter: 2016Q3

REPORT INFORMATION
  Report Type: Spontaneous
  Country: US (occurrence: US)
  Receive Date: 20160930
  Receipt Date: 20160930
  Transmission Date: 20161109
  Serious: Yes (Hospitalization)
  Sender: FDA-Public Use
  Company Number: US-ABBVIE-16P-163-1705097-00

PATIENT
  Sex: Female
  Weight: 127.01 kg

DRUGS (3)
  1. LUPRON [Suspect]
     Active Substance: LEUPROLIDE ACETATE
     Indication: PRODUCT USED FOR UNKNOWN INDICATION
     Route: 065
     Dates: start: 2006, end: 2008
  2. DEPO-PROVERA [Suspect]
     Active Substance: MEDROXYPROGESTERONE ACETATE
     Indication: MENSTRUAL CYCLE MANAGEMENT
     Route: 050
     Dates: start: 1997
  3. DEPO-PROVERA [Suspect]
     Active Substance: MEDROXYPROGESTERONE ACETATE
     Indication: ENDOMETRIOSIS
     Route: 050
     Dates: start: 2006

REACTIONS (9)
  - Adverse event [Unknown]
  - Osteoporosis [Unknown]
  - Wheelchair user [Not Recovered/Not Resolved]
  - Vision blurred [Not Recovered/Not Resolved]
  - Vertigo [Unknown]
  - Mass [Not Recovered/Not Resolved]
  - Nausea [Unknown]
  - Balance disorder [Unknown]
  - Headache [Not Recovered/Not Resolved]

NARRATIVE: CASE EVENT DATE: 2010
